FAERS Safety Report 4384125-5 (Version None)
Quarter: 2004Q2

REPORT INFORMATION
  Report Type: 
  Country: None (occurrence: None)
  Receive Date: 20040621
  Receipt Date: 20040608
  Transmission Date: 20050107
  Serious: Yes (Hospitalization)
  Sender: FDA-Public Use
  Company Number: 2004038312

PATIENT
  Age: 64 Year
  Sex: Female

DRUGS (3)
  1. ZIPRASIDONE [Suspect]
     Indication: DEPRESSION
     Dosage: 20 MG (20 MG, 1 IN 1 D), ORAL
     Route: 048
  2. ZIPRASIDONE [Suspect]
     Indication: PSYCHOTIC DISORDER
     Dosage: 20 MG (20 MG, 1 IN 1 D), ORAL
     Route: 048
  3. ALL OTHER PRODUCTS (ALL OTHER THERAPEUTIC PRODUCTS) [Concomitant]

REACTIONS (4)
  - BLOOD PRESSURE INCREASED [None]
  - HYPERSENSITIVITY [None]
  - LUPUS-LIKE SYNDROME [None]
  - RENAL FAILURE [None]
